FAERS Safety Report 5311030-X (Version None)
Quarter: 2007Q2

REPORT INFORMATION
  Report Type: 
  Country: None (occurrence: None)
  Receive Date: 20070427
  Receipt Date: 20070427
  Transmission Date: 20071010
  Serious: Yes (Hospitalization, Other)
  Sender: FDA-Public Use
  Company Number: None

PATIENT
  Sex: Female
  Weight: 54.8852 kg

DRUGS (1)
  1. ORIGIN CALCIUM 600+D USP [Suspect]
     Indication: MINERAL SUPPLEMENTATION
     Dosage: 1-2 TABLETS 600 MGS + D250 IV 1-2X/DAY
     Dates: start: 20070201, end: 20070311

REACTIONS (6)
  - DIZZINESS [None]
  - DYSPNOEA [None]
  - HEADACHE [None]
  - PALPITATIONS [None]
  - PHARMACEUTICAL PRODUCT COMPLAINT [None]
  - TREMOR [None]
